FAERS Safety Report 6371460-4 (Version None)
Quarter: 2009Q3

REPORT INFORMATION
  Report Type: 
  Country: None (occurrence: None)
  Receive Date: 20090923
  Receipt Date: 20071227
  Transmission Date: 20100115
  Serious: Yes (Hospitalization)
  Sender: FDA-Public Use
  Company Number: US-ASTRAZENECA-2007UW14137

PATIENT
  Age: 17457 Day
  Sex: Female

DRUGS (18)
  1. SEROQUEL [Suspect]
     Indication: DEPRESSION
     Dosage: 25 MG-400 MG
     Route: 048
     Dates: start: 20000831
  2. SEROQUEL [Suspect]
     Route: 048
     Dates: start: 20010301
  3. COPAXONE [Concomitant]
     Route: 048
  4. ESTRADERM [Concomitant]
     Dosage: 0.1 MG PATCH WEEKLY APPLIED ON SATURDAYS
  5. MAXAIR [Concomitant]
  6. PROZAC [Concomitant]
     Route: 048
  7. SYNTHROID [Concomitant]
     Route: 048
  8. CELEXA [Concomitant]
  9. XANAX [Concomitant]
     Route: 048
  10. CELEBREX [Concomitant]
     Route: 048
  11. PREDNISONE [Concomitant]
     Route: 042
  12. REMERON [Concomitant]
  13. AMBIEN [Concomitant]
  14. DARVOCET-N 100 [Concomitant]
  15. MOTRIN 400 [Concomitant]
     Dosage: 400 MG TO 800 MG TWICE A DAY
     Route: 048
  16. SOLU-MEDROL [Concomitant]
  17. BETASERON [Concomitant]
  18. DROPERIDOL [Concomitant]
     Dosage: 0.5-1 CC AS REQUIRED
     Route: 042

REACTIONS (1)
  - TYPE 2 DIABETES MELLITUS [None]
